FAERS Safety Report 5749636-6 (Version None)
Quarter: 2008Q2

REPORT INFORMATION
  Report Type: 
  Country: None (occurrence: None)
  Receive Date: 20080527
  Receipt Date: 20080514
  Transmission Date: 20081010
  Serious: Yes (Hospitalization)
  Sender: FDA-Public Use
  Company Number: US-MERCK-0805USA04699

PATIENT
  Age: 68 Year
  Sex: Male

DRUGS (7)
  1. HYDRODIURIL [Suspect]
     Indication: HYPERTENSION
     Route: 048
     Dates: end: 20040301
  2. PREVACID [Concomitant]
     Route: 065
  3. LIPITOR [Concomitant]
     Route: 065
  4. AVANDIA [Concomitant]
     Route: 065
  5. ASPIRIN [Concomitant]
     Route: 065
  6. [THERAPY UNSPECIFIED] [Suspect]
     Route: 065
  7. DIURETIC (UNSPECIFIED) [Suspect]
     Route: 065

REACTIONS (1)
  - ACUTE PRERENAL FAILURE [None]
